FAERS Safety Report 7748937-X (Version None)
Quarter: 2011Q3

REPORT INFORMATION
  Report Type: 
  Country: None (occurrence: None)
  Receive Date: 20110914
  Receipt Date: 20110204
  Transmission Date: 20111222
  Serious: No
  Sender: FDA-Public Use
  Company Number: US-BAYER-2011-012538

PATIENT
  Sex: Female

DRUGS (1)
  1. MIRENA [Suspect]
     Dosage: 20 ?G/D, CONT
     Route: 015
     Dates: start: 20110101, end: 20110203

REACTIONS (4)
  - PROCEDURAL PAIN [None]
  - GENITAL HAEMORRHAGE [None]
  - ABDOMINAL PAIN LOWER [None]
  - MEDICAL DEVICE DISCOMFORT [None]
